FAERS Safety Report 8506307-0 (Version None)
Quarter: 2012Q3

REPORT INFORMATION
  Report Type: 
  Country: None (occurrence: None)
  Receive Date: 20120712
  Receipt Date: 20120102
  Transmission Date: 20120928
  Serious: Yes (Death)
  Sender: FDA-Public Use
  Company Number: FI-ROCHE-1086487

PATIENT

DRUGS (1)
  1. AVASTIN [Suspect]
     Indication: OLIGODENDROGLIOMA
     Dosage: CYCLICAL
     Dates: start: 20100311, end: 20101115

REACTIONS (1)
  - DEATH [None]
